FAERS Safety Report 12821322 (Version 1)
Quarter: 2016Q4

REPORT INFORMATION
  Report Type: Spontaneous
  Country: FR (occurrence: FR)
  Receive Date: 20161006
  Receipt Date: 20161006
  Transmission Date: 20170207
  Serious: Yes (Hospitalization)
  Sender: FDA-Public Use
  Company Number: FR-SA-2016SA181126

PATIENT
  Age: 41 Year
  Sex: Male

DRUGS (9)
  1. NEBIVOLOL. [Suspect]
     Active Substance: NEBIVOLOL
     Dosage: 5 TO 6 TABLETS
     Route: 048
     Dates: end: 20160825
  2. DEPAKOTE [Concomitant]
     Active Substance: DIVALPROEX SODIUM
  3. TERALITHE [Suspect]
     Active Substance: LITHIUM CARBONATE
     Route: 048
  4. AMAREL [Suspect]
     Active Substance: GLIMEPIRIDE
     Route: 048
     Dates: end: 20160825
  5. STILNOX [Concomitant]
     Active Substance: ZOLPIDEM TARTRATE
  6. XANAX [Concomitant]
     Active Substance: ALPRAZOLAM
  7. RAMIPRIL. [Concomitant]
     Active Substance: RAMIPRIL
  8. ABILIFY [Suspect]
     Active Substance: ARIPIPRAZOLE
     Route: 048
     Dates: end: 20160825
  9. LERCANIDIPINE [Concomitant]
     Active Substance: LERCANIDIPINE

REACTIONS (6)
  - Renal failure [Recovered/Resolved]
  - Electrocardiogram QT prolonged [Recovered/Resolved]
  - Encephalopathy [Recovered/Resolved]
  - Vomiting [Recovered/Resolved]
  - Disturbance in attention [Recovered/Resolved]
  - Hypotension [Recovered/Resolved]

NARRATIVE: CASE EVENT DATE: 20160825
